FAERS Safety Report 14345903 (Version 3)
Quarter: 2018Q1

REPORT INFORMATION
  Report Type: Report from Study
  Country: US (occurrence: US)
  Receive Date: 20180103
  Receipt Date: 20180314
  Transmission Date: 20180509
  Serious: Yes (Hospitalization, Other)
  Sender: FDA-Public Use
  Company Number: US-JNJFOC-20170903704

PATIENT
  Age: 64 Year
  Sex: Male
  Weight: 136 kg

DRUGS (9)
  1. IMBRUVICA [Suspect]
     Active Substance: IBRUTINIB
     Indication: CHRONIC LYMPHOCYTIC LEUKAEMIA
     Route: 048
     Dates: start: 20170707, end: 20170828
  2. IMBRUVICA [Suspect]
     Active Substance: IBRUTINIB
     Indication: CHRONIC LYMPHOCYTIC LEUKAEMIA
     Route: 048
     Dates: start: 20170714
  3. TURMERIC [Concomitant]
     Active Substance: HERBALS\TURMERIC
  4. LOSARTAN. [Concomitant]
     Active Substance: LOSARTAN
  5. MULTIVITAMINS [Concomitant]
     Active Substance: VITAMINS
  6. VITAMIN D3 [Concomitant]
     Active Substance: CHOLECALCIFEROL
  7. SERENOA REPENS [Concomitant]
     Active Substance: SERENOA REPENS WHOLE
  8. TYLENOL [Concomitant]
     Active Substance: ACETAMINOPHEN
  9. BREO ELLIPTA [Concomitant]
     Active Substance: FLUTICASONE FUROATE\VILANTEROL TRIFENATATE

REACTIONS (7)
  - Tricuspid valve incompetence [Unknown]
  - Pulmonary hypertension [Unknown]
  - Right ventricular enlargement [Unknown]
  - Atrial fibrillation [Recovering/Resolving]
  - Mitral valve incompetence [Unknown]
  - Cardiac failure congestive [Unknown]
  - Blood pressure increased [Unknown]

NARRATIVE: CASE EVENT DATE: 201708
